FAERS Safety Report 25325008 (Version 1)
Quarter: 2025Q2

REPORT INFORMATION
  Report Type: Spontaneous
  Country: US (occurrence: None)
  Receive Date: 20250516
  Receipt Date: 20250516
  Transmission Date: 20250716
  Serious: Yes (Hospitalization)
  Sender: FDA-CTU
  Company Number: None

PATIENT
  Age: 40 Year
  Sex: Female

DRUGS (10)
  1. AJOVY [Suspect]
     Active Substance: FREMANEZUMAB-VFRM
  2. ALBUTEROL [Concomitant]
     Active Substance: ALBUTEROL
  3. nietoprolol tartrate 50 mg [Concomitant]
  4. OMEPRAZOLE [Concomitant]
     Active Substance: OMEPRAZOLE
  5. chlorzoxazone 375 mg [Concomitant]
  6. BOTOX [Concomitant]
     Active Substance: ONABOTULINUMTOXINA
  7. UBRELVY [Concomitant]
     Active Substance: UBROGEPANT
  8. zavzpret 10 mg nasal spray [Concomitant]
  9. LOSARTAN [Concomitant]
     Active Substance: LOSARTAN
  10. ^nerve block [Concomitant]

REACTIONS (2)
  - Blood pressure increased [None]
  - Intentional dose omission [None]

NARRATIVE: CASE EVENT DATE: 20250410
